FAERS Safety Report 9520653 (Version 1)
Quarter: 2013Q3

REPORT INFORMATION
  Report Type: Spontaneous
  Country: SE (occurrence: SE)
  Receive Date: 20130913
  Receipt Date: 20130913
  Transmission Date: 20140515
  Serious: Yes (Other)
  Sender: FDA-Public Use
  Company Number: SE-009507513-1309SWE005053

PATIENT
  Age: 8 Year
  Sex: Male

DRUGS (7)
  1. SINGULAIR [Suspect]
     Indication: ASTHMA
     Dosage: UNK
     Dates: end: 20130301
  2. SINGULAIR [Suspect]
     Indication: HYPERSENSITIVITY
  3. KAVEPENIN [Suspect]
     Indication: TONSILLITIS
  4. AERIUS [Concomitant]
  5. NASONEX [Concomitant]
  6. PULMICORT [Concomitant]
  7. BRICANYL [Concomitant]

REACTIONS (5)
  - Joint swelling [Unknown]
  - Myalgia [Recovered/Resolved]
  - Depressed mood [Recovered/Resolved]
  - Hallucination [Recovered/Resolved]
  - Urticaria [Unknown]
